FAERS Safety Report 15399808 (Version 2)
Quarter: 2018Q3

REPORT INFORMATION
  Report Type: Report from Study
  Country: DE (occurrence: DE)
  Receive Date: 20180918
  Receipt Date: 20180920
  Transmission Date: 20181010
  Serious: Yes (Death, Life-Threatening, Hospitalization, Other)
  Sender: FDA-Public Use
  Company Number: DE-BRISTOL-MYERS SQUIBB COMPANY-BMS-2017-106798

PATIENT
  Age: 65 Year
  Sex: Male

DRUGS (9)
  1. APIXABAN [Concomitant]
     Active Substance: APIXABAN
     Indication: PRODUCT USED FOR UNKNOWN INDICATION
     Dosage: 2.5 MG, BID
     Route: 065
     Dates: start: 20180609
  2. ACETYLCYSTEINE. [Concomitant]
     Active Substance: ACETYLCYSTEINE
     Indication: LUNG DISORDER
     Dosage: 600 MG, QD
     Route: 065
     Dates: start: 20180609
  3. APIXABAN [Concomitant]
     Active Substance: APIXABAN
     Indication: PRODUCT USED FOR UNKNOWN INDICATION
     Dosage: UNK
     Route: 065
     Dates: end: 20180608
  4. NIVOLUMAB [Suspect]
     Active Substance: NIVOLUMAB
     Indication: NON-SMALL CELL LUNG CANCER
     Dosage: 240 MG, Q2WK
     Route: 042
     Dates: start: 20170914, end: 20180815
  5. ABASAGLAR [Concomitant]
     Active Substance: INSULIN GLARGINE
     Indication: METABOLIC DISORDER
     Dosage: 300 IU, UNK
     Route: 065
  6. AMITRIPTYLIN [Concomitant]
     Active Substance: AMITRIPTYLINE
     Indication: PRODUCT USED FOR UNKNOWN INDICATION
     Dosage: 75 MG, TID
     Route: 065
  7. BERODUAL [Concomitant]
     Active Substance: FENOTEROL HYDROBROMIDE\IPRATROPIUM BROMIDE
     Indication: LUNG DISORDER
     Dosage: 1 DF, QD
     Route: 065
     Dates: start: 20180609
  8. ACTRAPID [Concomitant]
     Active Substance: INSULIN HUMAN
     Indication: METABOLIC DISORDER
     Dosage: 300 IU, UNK
     Route: 065
  9. ATORVASTATIN [Concomitant]
     Active Substance: ATORVASTATIN
     Indication: PRODUCT USED FOR UNKNOWN INDICATION
     Dosage: 40 MG, QHS
     Route: 065

REACTIONS (10)
  - Musculoskeletal pain [Unknown]
  - Malignant neoplasm progression [Not Recovered/Not Resolved]
  - Haemoptysis [Recovered/Resolved]
  - Chills [Recovered/Resolved]
  - Arthralgia [Unknown]
  - General physical health deterioration [Fatal]
  - Dyspnoea [Fatal]
  - Tumour pseudoprogression [Not Recovered/Not Resolved]
  - Nasopharyngitis [Recovered/Resolved]
  - Embolism [Fatal]

NARRATIVE: CASE EVENT DATE: 20170915
